FAERS Safety Report 21671599 (Version 1)
Quarter: 2022Q4

REPORT INFORMATION
  Report Type: Spontaneous
  Country: NL (occurrence: NL)
  Receive Date: 20221202
  Receipt Date: 20221202
  Transmission Date: 20230113
  Serious: Yes (Death)
  Sender: FDA-Public Use
  Company Number: None

PATIENT
  Sex: Male
  Weight: 76 kg

DRUGS (1)
  1. CLOZAPINE [Suspect]
     Active Substance: CLOZAPINE
     Indication: Schizophrenia
     Dosage: 300 MILLIGRAM DAILY;  1 X PER DAY 3 PIECES   ,BRAND NAME NOT SPECIFIED ,  THERAPY END DATE : ASKU ,
     Dates: start: 20130201

REACTIONS (2)
  - Snoring [Fatal]
  - Arrhythmia [Fatal]
